FAERS Safety Report 13824967 (Version 1)
Quarter: 2017Q3

REPORT INFORMATION
  Report Type: Spontaneous
  Country: US (occurrence: US)
  Receive Date: 20170802
  Receipt Date: 20170802
  Transmission Date: 20171127
  Serious: Yes (Death, Hospitalization)
  Sender: FDA-Public Use
  Company Number: US-PFIZER INC-2017329342

PATIENT
  Age: 62 Year
  Sex: Female

DRUGS (3)
  1. AMITRIPTYLINE [Concomitant]
     Active Substance: AMITRIPTYLINE
     Indication: INSOMNIA
  2. AMITRIPTYLINE [Concomitant]
     Active Substance: AMITRIPTYLINE
     Indication: DEPRESSION
     Dosage: 25 MG, UNK (AT BEDTIME)
     Dates: start: 198704
  3. CARBOPLATIN. [Suspect]
     Active Substance: CARBOPLATIN
     Indication: MEDULLOBLASTOMA
     Dosage: 175 MG/M2, WEEKLY (175 MG/M2 WEEKLY X 4 FOLLOWED BY A 3-WEEK REST)
     Dates: start: 198602, end: 19870509

REACTIONS (2)
  - Thrombotic microangiopathy [Fatal]
  - Microangiopathic haemolytic anaemia [Fatal]
